FAERS Safety Report 7233201-8 (Version None)
Quarter: 2011Q1

REPORT INFORMATION
  Report Type: 
  Country: None (occurrence: None)
  Receive Date: 20110119
  Receipt Date: 20110114
  Transmission Date: 20110831
  Serious: Yes (Hospitalization)
  Sender: FDA-Public Use
  Company Number: A0906197A

PATIENT
  Age: 25 Year
  Sex: Female

DRUGS (2)
  1. PROAIR HFA [Concomitant]
  2. ADVAIR [Suspect]
     Indication: ASTHMA
     Dosage: 1PUFF TWICE PER DAY
     Route: 055
     Dates: start: 20010101

REACTIONS (5)
  - PNEUMONIA [None]
  - FEELING JITTERY [None]
  - ARTHRALGIA [None]
  - CHOLECYSTECTOMY [None]
  - RHINITIS [None]
